FAERS Safety Report 5791888-0 (Version None)
Quarter: 2008Q2

REPORT INFORMATION
  Report Type: 
  Country: None (occurrence: None)
  Receive Date: 20080626
  Receipt Date: 20080617
  Transmission Date: 20081010
  Serious: Yes (Other)
  Sender: FDA-Public Use
  Company Number: US-BAXTER-2008BH006476

PATIENT
  Age: 83 Year
  Sex: Male

DRUGS (8)
  1. BUMINATE 5% [Suspect]
     Indication: CARDIAC OPERATION
     Dosage: DOSE UNIT:UNKNOWN
     Route: 042
     Dates: start: 20080616, end: 20080616
  2. UNSPECIFIED ALBUMIN 5% [Suspect]
     Indication: CARDIAC OPERATION
     Dosage: DOSE UNIT:UNKNOWN
     Route: 042
     Dates: start: 20080616, end: 20080616
  3. FLOMAX [Concomitant]
     Indication: DRUG USE FOR UNKNOWN INDICATION
     Dosage: DOSE UNIT:UNKNOWN
     Route: 048
  4. LISINOPRIL [Concomitant]
     Indication: DRUG USE FOR UNKNOWN INDICATION
     Route: 048
  5. NEXIUM [Concomitant]
     Indication: DRUG USE FOR UNKNOWN INDICATION
     Route: 048
  6. NORVASC [Concomitant]
     Indication: DRUG USE FOR UNKNOWN INDICATION
     Route: 065
  7. NIACIN [Concomitant]
     Indication: DRUG USE FOR UNKNOWN INDICATION
     Route: 065
  8. GLUCOSAMINE [Concomitant]
     Indication: DRUG USE FOR UNKNOWN INDICATION
     Route: 065

REACTIONS (2)
  - BLOOD PRESSURE DECREASED [None]
  - VASCULAR RESISTANCE SYSTEMIC DECREASED [None]
